FAERS Safety Report 21452844 (Version 3)
Quarter: 2022Q4

REPORT INFORMATION
  Report Type: Other
  Country: ES (occurrence: None)
  Receive Date: 20221013
  Receipt Date: 20221202
  Transmission Date: 20230113
  Serious: Yes (Other)
  Sender: FDA-Public Use
  Company Number: ES-ROCHE-3197572

PATIENT
  Age: 72 Year
  Sex: Male

DRUGS (2)
  1. ATEZOLIZUMAB [Suspect]
     Active Substance: ATEZOLIZUMAB
     Indication: Lung adenocarcinoma
     Route: 065
  2. BEVACIZUMAB [Concomitant]
     Active Substance: BEVACIZUMAB
     Indication: Lung adenocarcinoma

REACTIONS (3)
  - Glomerulonephritis membranous [Recovering/Resolving]
  - Nephrotic syndrome [Recovering/Resolving]
  - Autoimmune hypothyroidism [Recovered/Resolved]

NARRATIVE: CASE EVENT DATE: 20200101
